FAERS Safety Report 17676605 (Version 2)
Quarter: 2020Q2

REPORT INFORMATION
  Report Type: Spontaneous
  Country: US (occurrence: US)
  Receive Date: 20200416
  Receipt Date: 20200511
  Transmission Date: 20200714
  Serious: No
  Sender: FDA-Public Use
  Company Number: US-IPSEN BIOPHARMACEUTICALS, INC.-2020-07187

PATIENT
  Age: 62 Year
  Sex: Female

DRUGS (4)
  1. DYSPORT [Suspect]
     Active Substance: ABOBOTULINUMTOXINA
     Indication: OFF LABEL USE
  2. DYSPORT [Suspect]
     Active Substance: ABOBOTULINUMTOXINA
     Indication: SKIN WRINKLING
  3. DYSPORT [Suspect]
     Active Substance: ABOBOTULINUMTOXINA
     Indication: SKIN WRINKLING
     Dosage: 20 IU [FRONTALIS (10 IU), CORRUGATOR (4 IU), ORBICULAR OCULI (6 IU)]
     Route: 030
     Dates: start: 20200305, end: 20200305
  4. DYSPORT [Suspect]
     Active Substance: ABOBOTULINUMTOXINA
     Indication: SKIN WRINKLING

REACTIONS (6)
  - Sinusitis [Not Recovered/Not Resolved]
  - Muscle twitching [Not Recovered/Not Resolved]
  - Facial pain [Not Recovered/Not Resolved]
  - Off label use [Unknown]
  - Toothache [Not Recovered/Not Resolved]
  - Tenderness [Not Recovered/Not Resolved]

NARRATIVE: CASE EVENT DATE: 2020
